FAERS Safety Report 9721485 (Version 1)
Quarter: 2013Q4

REPORT INFORMATION
  Report Type: Spontaneous
  Country: US (occurrence: US)
  Receive Date: 20131130
  Receipt Date: 20131130
  Transmission Date: 20140711
  Serious: No
  Sender: FDA-Public Use
  Company Number: US-009507513-1311USA012091

PATIENT
  Age: 81 Year
  Sex: Female

DRUGS (3)
  1. DULERA [Suspect]
     Indication: ASTHMA
     Dosage: 1 DF, BID; ONE PUFF TWO TIMES DAILY; INHALER
     Route: 055
     Dates: end: 201311
  2. DULERA [Suspect]
     Dosage: 2 DF, BID; TWO PUFFS TWO TIMES DAILY; INHALER
     Route: 055
     Dates: start: 201311
  3. FLUTICASONE [Concomitant]

REACTIONS (5)
  - Malaise [Unknown]
  - Productive cough [Unknown]
  - Underdose [Unknown]
  - Incorrect dose administered [Unknown]
  - Product quality issue [Unknown]
